FAERS Safety Report 21593903 (Version 1)
Quarter: 2022Q4

REPORT INFORMATION
  Report Type: Spontaneous
  Country: US (occurrence: US)
  Receive Date: 20221115
  Receipt Date: 20221115
  Transmission Date: 20230113
  Serious: No
  Sender: FDA-Public Use
  Company Number: US-Accord-253424

PATIENT
  Sex: Female

DRUGS (1)
  1. SPIRONOLACTONE [Suspect]
     Active Substance: SPIRONOLACTONE
     Indication: Acne cystic
     Route: 048

REACTIONS (4)
  - Drug ineffective [Unknown]
  - Product odour abnormal [Unknown]
  - Rash [Not Recovered/Not Resolved]
  - Off label use [Unknown]
